FAERS Safety Report 24700989 (Version 2)
Quarter: 2025Q2

REPORT INFORMATION
  Report Type: Spontaneous
  Country: US (occurrence: US)
  Receive Date: 20241205
  Receipt Date: 20250520
  Transmission Date: 20250717
  Serious: Yes (Other)
  Sender: LEO PHARM
  Company Number: US-LEO Pharma-375444

PATIENT
  Age: 76 Year
  Sex: Male

DRUGS (1)
  1. ADBRY [Suspect]
     Active Substance: TRALOKINUMAB-LDRM
     Indication: Dermatitis atopic
     Dosage: TREATMENT REPORTED AS ONGOING
     Route: 058

REACTIONS (2)
  - Skin cancer [Unknown]
  - Dermatitis atopic [Unknown]
